FAERS Safety Report 9963865 (Version 1)
Quarter: 2014Q1

REPORT INFORMATION
  Report Type: Report from Study
  Country: US (occurrence: US)
  Receive Date: 20140305
  Receipt Date: 20140305
  Transmission Date: 20141002
  Serious: No
  Sender: FDA-Public Use
  Company Number: US-ABBVIE-13P-163-1117535-00

PATIENT
  Age: 48 Year
  Sex: Female
  Weight: 77.18 kg

DRUGS (12)
  1. HUMIRA [Suspect]
     Indication: RHEUMATOID ARTHRITIS
     Route: 058
     Dates: start: 20130201
  2. METHOTREXATE [Concomitant]
     Indication: RHEUMATOID ARTHRITIS
  3. PRILOSEC [Concomitant]
     Indication: GASTROOESOPHAGEAL REFLUX DISEASE
  4. METHADONE [Concomitant]
     Indication: PAIN
  5. ZANAFLEX [Concomitant]
     Indication: MUSCLE SPASMS
  6. LIMBITROL [Concomitant]
     Indication: MIGRAINE
  7. FOLIC ACID [Concomitant]
     Indication: PRODUCT USED FOR UNKNOWN INDICATION
  8. XANAX [Concomitant]
     Indication: ANXIETY
  9. CELEXA [Concomitant]
     Indication: ANXIETY
  10. REQUIP [Concomitant]
     Indication: RESTLESS LEGS SYNDROME
  11. NEURONTIN [Concomitant]
     Indication: PAIN
  12. LORTAB [Concomitant]
     Indication: PAIN

REACTIONS (4)
  - Blister [Recovered/Resolved]
  - Herpes zoster [Recovered/Resolved]
  - Rash [Recovered/Resolved]
  - Rash [Recovered/Resolved]
